FAERS Safety Report 8789783 (Version 1)
Quarter: 2012Q4

REPORT INFORMATION
  Report Type: Spontaneous
  Country: US (occurrence: None)
  Receive Date: 20120911
  Receipt Date: 20120911
  Transmission Date: 20130627
  Serious: No
  Sender: FDA-Public Use
  Company Number: None

PATIENT
  Age: 34 Year
  Sex: Female

DRUGS (1)
  1. AVONEX [Suspect]
     Indication: ILL-DEFINED DISORDER
     Route: 030
     Dates: start: 20120816

REACTIONS (6)
  - Asthenia [None]
  - Hypoaesthesia [None]
  - Paraesthesia [None]
  - Hyperhidrosis [None]
  - Palpitations [None]
  - Anxiety [None]
